FAERS Safety Report 12473685 (Version 3)
Quarter: 2016Q3

REPORT INFORMATION
  Report Type: Spontaneous
  Country: US (occurrence: US)
  Receive Date: 20160616
  Receipt Date: 20160706
  Transmission Date: 20161109
  Serious: Yes (Hospitalization)
  Sender: FDA-Public Use
  Company Number: US-ACTELION-A-NJ2016-137601

PATIENT
  Age: 62 Year
  Sex: Female

DRUGS (1)
  1. VELETRI [Suspect]
     Active Substance: EPOPROSTENOL
     Indication: PULMONARY ARTERIAL HYPERTENSION
     Dosage: 31 NG/KG, PER MIN
     Route: 042
     Dates: start: 20100820

REACTIONS (7)
  - Unresponsive to stimuli [Unknown]
  - Catheter removal [Unknown]
  - Catheter placement [Unknown]
  - Device related infection [Unknown]
  - Sepsis [Unknown]
  - Dermatitis contact [Unknown]
  - Hypotension [Unknown]

NARRATIVE: CASE EVENT DATE: 20160604
